FAERS Safety Report 7941900-5 (Version None)
Quarter: 2011Q4

REPORT INFORMATION
  Report Type: 
  Country: None (occurrence: None)
  Receive Date: 20111128
  Receipt Date: 20111117
  Transmission Date: 20120403
  Serious: Yes (Other)
  Sender: FDA-Public Use
  Company Number: US-JNJFOC-20111108102

PATIENT
  Age: 7 Decade
  Sex: Male

DRUGS (3)
  1. STELARA [Suspect]
     Indication: PSORIASIS
     Dosage: 26 WEEKS
     Route: 058
     Dates: start: 20090101, end: 20100101
  2. REMICADE [Suspect]
     Route: 042
     Dates: start: 20110701, end: 20111101
  3. REMICADE [Suspect]
     Indication: PSORIASIS
     Route: 042
     Dates: end: 20090101

REACTIONS (1)
  - HEPATIC NEOPLASM MALIGNANT [None]
